FAERS Safety Report 8531340-2 (Version None)
Quarter: 2012Q3

REPORT INFORMATION
  Report Type: 
  Country: None (occurrence: None)
  Receive Date: 20120710
  Receipt Date: 20120619
  Transmission Date: 20120928
  Serious: No
  Sender: FDA-Public Use
  Company Number: NY120187

PATIENT
  Age: 55 Year
  Sex: Female

DRUGS (1)
  1. CHLORHEXIDINE GLUCONATE [Suspect]
     Indication: BIOPSY BREAST
     Dosage: 268 MG
     Dates: start: 20120601

REACTIONS (1)
  - RASH [None]
